FAERS Safety Report 4705346-5 (Version None)
Quarter: 2005Q2

REPORT INFORMATION
  Report Type: 
  Country: None (occurrence: None)
  Receive Date: 20050629
  Receipt Date: 20050620
  Transmission Date: 20051028
  Serious: Yes (Death)
  Sender: FDA-Public Use
  Company Number: GXKR2005GB01090

PATIENT
  Sex: Male

DRUGS (11)
  1. SIMVASTATIN [Suspect]
     Dosage: ORAL
     Route: 048
  2. PANTOPRAZOLE SODIUM [Suspect]
     Dosage: 20 MG/DAY, ORAL
     Route: 048
  3. DIGOXIN [Suspect]
     Dosage: 250 MG/DAY, ORAL
     Route: 048
  4. ALLOPURINOL [Suspect]
     Dosage: 200 MG/DAY, ORAL
     Route: 048
  5. FUROSEMIDE [Suspect]
     Dosage: 80 MG/DAY, ORAL
     Route: 048
  6. SPIRIVA [Suspect]
     Dosage: 1 DF/DAY, ORAL
     Route: 048
  7. COVERSYL(PERINDOPRIL) [Suspect]
     Dosage: 4 MG/DAY, ORAL
     Route: 048
  8. WARFARIN SODIUM [Concomitant]
  9. BECLOMETHASONE DIPROPIONATE [Concomitant]
  10. VENTOLIN [Concomitant]
  11. ACETAMINOPHEN [Concomitant]

REACTIONS (1)
  - AORTIC DISSECTION [None]
